FAERS Safety Report 7432961-0 (Version None)
Quarter: 2011Q2

REPORT INFORMATION
  Report Type: 
  Country: None (occurrence: None)
  Receive Date: 20110422
  Receipt Date: 20110412
  Transmission Date: 20111010
  Serious: No
  Sender: FDA-Public Use
  Company Number: US-PFIZER INC-2011084370

PATIENT

DRUGS (1)
  1. GEODON [Suspect]
     Dosage: 80 MG PER DAY

REACTIONS (1)
  - DIZZINESS [None]
